FAERS Safety Report 9445913 (Version 1)
Quarter: 2013Q3

REPORT INFORMATION
  Report Type: Report from Study
  Country: DE (occurrence: DE)
  Receive Date: 20130807
  Receipt Date: 20130807
  Transmission Date: 20140515
  Serious: No
  Sender: FDA-Public Use
  Company Number: PHHY2013DE079869

PATIENT
  Sex: 0

DRUGS (7)
  1. AMN107 [Suspect]
     Indication: CHRONIC MYELOID LEUKAEMIA
     Dosage: 600 MG PER DAY, UNK
     Route: 048
     Dates: start: 20110126, end: 20111228
  2. PANTOZOL [Concomitant]
     Dosage: 40 MG, UNK
     Dates: start: 20070101
  3. ENALAPRIL [Concomitant]
     Dosage: UNK UKN, UNK
     Dates: start: 20070101
  4. DOXAZOCIN [Concomitant]
     Dosage: UNK
  5. OPIPRAMOL [Concomitant]
     Dosage: UNK
  6. MOVICOL [Concomitant]
     Dosage: UNK UKN, UNK
     Dates: start: 20110101
  7. CLOPIDOGREL [Concomitant]
     Dosage: UNK
     Dates: start: 20110225

REACTIONS (1)
  - Dysaesthesia [Not Recovered/Not Resolved]
